FAERS Safety Report 10940267 (Version 2)
Quarter: 2015Q2

REPORT INFORMATION
  Report Type: Spontaneous
  Country: US (occurrence: US)
  Receive Date: 20150322
  Receipt Date: 20150525
  Transmission Date: 20150821
  Serious: No
  Sender: FDA-Public Use
  Company Number: US-JNJFOC-20140502101

PATIENT
  Sex: Female
  Weight: 113.4 kg

DRUGS (1)
  1. NUCYNTA [Suspect]
     Active Substance: TAPENTADOL HYDROCHLORIDE
     Indication: KNEE OPERATION
     Dosage: 1 OR 2 TABLETS EVERY 6 HOURS AS NEEDED
     Route: 048
     Dates: start: 201307

REACTIONS (1)
  - Abasia [Recovered/Resolved]
